FAERS Safety Report 8371874-7 (Version None)
Quarter: 2012Q2

REPORT INFORMATION
  Report Type: 
  Country: None (occurrence: None)
  Receive Date: 20120518
  Receipt Date: 20120502
  Transmission Date: 20120825
  Serious: Yes (Disabling, Other)
  Sender: FDA-Public Use
  Company Number: US-ROCHE-799049

PATIENT
  Sex: Male
  Weight: 69.9 kg

DRUGS (4)
  1. PROPARACAINE HCL [Concomitant]
     Route: 047
  2. VELCADE [Suspect]
  3. POVIDONE IODINE [Concomitant]
     Dosage: 5 % IN BSS
  4. OFLOXACIN [Concomitant]
     Dosage: 3 % OPHTH
     Route: 047

REACTIONS (7)
  - EYE INFLAMMATION [None]
  - BLINDNESS [None]
  - PAIN [None]
  - VISUAL ACUITY REDUCED [None]
  - MEDICATION ERROR [None]
  - EYE PAIN [None]
  - VISION BLURRED [None]
